FAERS Safety Report 7903418-5 (Version None)
Quarter: 2011Q4

REPORT INFORMATION
  Report Type: 
  Country: None (occurrence: None)
  Receive Date: 20111109
  Receipt Date: 20111103
  Transmission Date: 20120403
  Serious: No
  Sender: FDA-Public Use
  Company Number: US-AMGEN-USASP2011041649

PATIENT
  Age: 65 Year
  Sex: Female
  Weight: 80.5 kg

DRUGS (11)
  1. EPIPEN [Concomitant]
     Indication: ANAPHYLACTIC REACTION
     Dosage: 1 MG, AS NEEDED
     Route: 030
     Dates: start: 20080729
  2. FOLIC ACID [Concomitant]
     Dosage: 1 MG, QD
     Route: 048
  3. ZITHROMAX [Concomitant]
     Dosage: 250 MG, 2 TAB ON DAY 1 THEN 1 TAB BY MOUTH QD
     Route: 048
  4. ASPIRIN [Concomitant]
     Dosage: UNK
  5. PREDNISONE [Concomitant]
     Indication: INFLAMMATION
  6. METHOTREXATE [Concomitant]
     Dosage: 2.5 MG, 10 TABLETS WEEKLY
     Route: 048
  7. LEVOTHYROXINE SODIUM [Concomitant]
     Indication: THYROID DISORDER
     Dosage: 0.1 MG, QD
     Route: 048
  8. CYMBALTA [Concomitant]
     Dosage: 20 MG, QD
     Route: 048
  9. ENBREL [Suspect]
     Indication: RHEUMATOID ARTHRITIS
     Dosage: 50 MG, QWK
     Route: 058
     Dates: start: 19940901
  10. PREDNISONE [Concomitant]
     Indication: PAIN
     Dosage: 5 MG, AS NEEDED
     Route: 048
  11. LISINOPRIL [Concomitant]
     Dosage: 10 MG, QD
     Route: 048

REACTIONS (8)
  - FATIGUE [None]
  - LACERATION [None]
  - RHEUMATOID NODULE [None]
  - CATARACT [None]
  - HYPOAESTHESIA [None]
  - LIMB INJURY [None]
  - CONTUSION [None]
  - BACK INJURY [None]
